FAERS Safety Report 11083087 (Version 3)
Quarter: 2016Q3

REPORT INFORMATION
  Report Type: Spontaneous
  Country: FR (occurrence: FR)
  Receive Date: 20150501
  Receipt Date: 20160711
  Transmission Date: 20161109
  Serious: Yes (Life-Threatening, Hospitalization)
  Sender: FDA-Public Use
  Company Number: FR-MYLANLABS-2015M1014710

PATIENT

DRUGS (3)
  1. ALCOHOL. [Concomitant]
     Active Substance: ALCOHOL
     Dosage: 1L OF 15% ALCOHOL
     Route: 065
  2. ALPRAZOLAM. [Interacting]
     Active Substance: ALPRAZOLAM
     Indication: PRODUCT USED FOR UNKNOWN INDICATION
     Dosage: 15 G
     Route: 048
  3. TRAMADOL. [Suspect]
     Active Substance: TRAMADOL
     Indication: PRODUCT USED FOR UNKNOWN INDICATION
     Dosage: 39 G
     Route: 048

REACTIONS (11)
  - Intentional overdose [Recovering/Resolving]
  - Acute kidney injury [Recovering/Resolving]
  - Toxicity to various agents [Recovering/Resolving]
  - Drug interaction [Recovering/Resolving]
  - Partial seizures [Recovering/Resolving]
  - Mydriasis [Recovering/Resolving]
  - Lactic acidosis [Recovering/Resolving]
  - Hepatic failure [Recovering/Resolving]
  - Epilepsy [Recovering/Resolving]
  - Cardiogenic shock [Recovering/Resolving]
  - Respiratory arrest [Recovering/Resolving]
